FAERS Safety Report 20938260 (Version 1)
Quarter: 2022Q2

REPORT INFORMATION
  Report Type: Spontaneous
  Country: US (occurrence: US)
  Receive Date: 20220609
  Receipt Date: 20220609
  Transmission Date: 20220721
  Serious: Yes (Death, Other)
  Sender: FDA-Public Use
  Company Number: US-AMGEN-USASP2022094321

PATIENT
  Age: 87 Year
  Sex: Male

DRUGS (5)
  1. FILGRASTIM [Suspect]
     Active Substance: FILGRASTIM
     Indication: Prophylaxis
     Dosage: UNK
     Route: 065
  2. HYDROXYUREA [Concomitant]
     Active Substance: HYDROXYUREA
     Indication: Cytoreductive surgery
     Dosage: UNK
  3. VENETOCLAX [Concomitant]
     Active Substance: VENETOCLAX
     Dosage: DOSE ESCALATED FROM 100 MG ON D1 TO 400 MG BY D3
  4. AZACITIDINE [Concomitant]
     Active Substance: AZACITIDINE
     Dosage: 75 MILLIGRAM/SQ. METER
     Route: 042
  5. GILTERITINIB [Concomitant]
     Active Substance: GILTERITINIB
     Dosage: UNK

REACTIONS (3)
  - Acute myeloid leukaemia [Fatal]
  - FLT3 gene mutation [Unknown]
  - Acute febrile neutrophilic dermatosis [Unknown]
